FAERS Safety Report 7582439-9 (Version None)
Quarter: 2011Q2

REPORT INFORMATION
  Report Type: 
  Country: None (occurrence: None)
  Receive Date: 20110630
  Receipt Date: 20110623
  Transmission Date: 20111010
  Serious: No
  Sender: FDA-Public Use
  Company Number: US-PFIZER INC-2011141041

PATIENT
  Sex: Male
  Weight: 86.168 kg

DRUGS (9)
  1. CIPROFLOXACIN [Concomitant]
     Dosage: UNK GTTS
     Route: 048
  2. SUTENT [Suspect]
     Indication: RENAL CANCER METASTATIC
     Dosage: 50 MG, 1X/DAY
     Route: 048
     Dates: start: 20110520
  3. ACETYLSALICYLIC ACID [Concomitant]
     Dosage: UNK
  4. SERTRALINE [Concomitant]
     Dosage: UNK
  5. FERROUS SULFATE [Concomitant]
     Dosage: UNK
  6. PERCOCET [Concomitant]
     Dosage: UNK
  7. ATACAND [Concomitant]
     Dosage: UNK
  8. VITAMIN B COMPLEX CAP [Concomitant]
     Dosage: UNK
  9. OXYCONTIN [Concomitant]
     Dosage: UNK

REACTIONS (1)
  - EAR INFECTION [None]
